FAERS Safety Report 9050663 (Version 1)
Quarter: 2013Q1

REPORT INFORMATION
  Report Type: Spontaneous
  Country: AU (occurrence: AU)
  Receive Date: 20130205
  Receipt Date: 20130205
  Transmission Date: 20140127
  Serious: Yes (Other)
  Sender: FDA-Public Use
  Company Number: AU-PFIZER INC-2013028769

PATIENT
  Sex: 0

DRUGS (1)
  1. CAVERJECT IMPULSE [Suspect]
     Dosage: UNK

REACTIONS (1)
  - Sexual abuse [Unknown]
